FAERS Safety Report 23591711 (Version 1)
Quarter: 2024Q1

REPORT INFORMATION
  Report Type: Report from Study
  Country: ZA (occurrence: ZA)
  Receive Date: 20240304
  Receipt Date: 20240304
  Transmission Date: 20240409
  Serious: Yes (Death, Other)
  Sender: FDA-Public Use
  Company Number: ZA-LUNDBECK-DKLU3074811

PATIENT
  Sex: Female

DRUGS (7)
  1. VORTIOXETINE [Suspect]
     Active Substance: VORTIOXETINE
     Indication: Depression
     Dosage: 10 MILLIGRAM, QD
     Route: 048
  2. CLOBAZAM [Concomitant]
     Active Substance: CLOBAZAM
     Indication: Anxiety
     Dosage: 10 MILLIGRAM, QD
     Route: 048
  3. ESCITALOPRAM [Concomitant]
     Active Substance: ESCITALOPRAM OXALATE
     Indication: Depression
     Dosage: 20 MILLIGRAM, QD
     Route: 048
  4. DORMONOCT [Concomitant]
     Active Substance: LOPRAZOLAM
     Indication: Insomnia
     Dosage: 2 MILLIGRAM, QD
     Route: 048
  5. BUDEP XR [Concomitant]
     Indication: Depression
     Dosage: 300 MILLIGRAM, QD
     Route: 048
  6. ZOPICLONE [Concomitant]
     Active Substance: ZOPICLONE
     Indication: Insomnia
     Dosage: 7.5 MILLIGRAM, QD
     Route: 048
  7. URISPAS [Concomitant]
     Active Substance: FLAVOXATE HYDROCHLORIDE
     Indication: Hypertonic bladder
     Dosage: 200 MILLIGRAM
     Route: 048

REACTIONS (1)
  - Death [Fatal]
